FAERS Safety Report 15563888 (Version 1)
Quarter: 2018Q4

REPORT INFORMATION
  Report Type: Report from Study
  Country: None (occurrence: KW)
  Receive Date: 20181030
  Receipt Date: 20181030
  Transmission Date: 20190205
  Serious: Yes (Other)
  Sender: FDA-Public Use
  Company Number: KW-ABBVIE-18K-091-2535985-00

PATIENT
  Age: 66 Year
  Sex: Female

DRUGS (1)
  1. HUMIRA [Suspect]
     Active Substance: ADALIMUMAB
     Indication: RHEUMATOID ARTHRITIS
     Route: 058
     Dates: start: 201003, end: 20181022

REACTIONS (1)
  - Benign breast neoplasm [Not Recovered/Not Resolved]

NARRATIVE: CASE EVENT DATE: 20181026
